FAERS Safety Report 18107088 (Version 1)
Quarter: 2020Q3

REPORT INFORMATION
  Report Type: Report from Study
  Country: US (occurrence: US)
  Receive Date: 20200804
  Receipt Date: 20200804
  Transmission Date: 20201103
  Serious: No
  Sender: FDA-Public Use
  Company Number: NVSC2020US212605

PATIENT
  Sex: Female

DRUGS (2)
  1. AFINITOR [Suspect]
     Active Substance: EVEROLIMUS
     Indication: TUBEROUS SCLEROSIS COMPLEX
     Dosage: 5 MG ALTERNATING
     Route: 048
     Dates: start: 20120123
  2. AFINITOR [Suspect]
     Active Substance: EVEROLIMUS
     Indication: ASTROCYTOMA, LOW GRADE
     Dosage: 5 MG EVERY OTHER DAY
     Route: 048
     Dates: start: 20120123

REACTIONS (2)
  - Product dose omission issue [Not Recovered/Not Resolved]
  - Hand fracture [Not Recovered/Not Resolved]
